FAERS Safety Report 5602462-0 (Version None)
Quarter: 2008Q1

REPORT INFORMATION
  Report Type: 
  Country: None (occurrence: None)
  Receive Date: 20080125
  Receipt Date: 20080111
  Transmission Date: 20080703
  Serious: Yes (Death, Other)
  Sender: FDA-Public Use
  Company Number: US-ELI_LILLY_AND_COMPANY-US200801002944

PATIENT
  Age: 61 Year
  Sex: Female
  Weight: 72.562 kg

DRUGS (5)
  1. CYMBALTA [Suspect]
     Indication: DEPRESSION
     Dosage: 30 MG, 2/D
     Dates: start: 20050109
  2. CYMBALTA [Suspect]
     Dosage: 60 MG, 2/D
  3. CYMBALTA [Suspect]
     Dosage: 90 MG, UNK
  4. LUNESTA [Concomitant]
     Indication: SLEEP DISORDER
     Dosage: 3 MG, EACH EVENING
     Route: 048
     Dates: start: 20061204
  5. XANAX [Concomitant]
     Dosage: UNK, AS NEEDED

REACTIONS (7)
  - ANOREXIA [None]
  - ANXIETY [None]
  - COMPLETED SUICIDE [None]
  - DRUG INEFFECTIVE [None]
  - DRUG INTERACTION [None]
  - FEELING ABNORMAL [None]
  - JUDGEMENT IMPAIRED [None]
